FAERS Safety Report 6557303-4 (Version None)
Quarter: 2010Q1

REPORT INFORMATION
  Report Type: 
  Country: None (occurrence: None)
  Receive Date: 20100129
  Receipt Date: 20100119
  Transmission Date: 20100710
  Serious: Yes (Other)
  Sender: FDA-Public Use
  Company Number: JP-RANBAXY-2009RR-28281

PATIENT
  Age: 49 Year
  Sex: Male
  Weight: 66 kg

DRUGS (12)
  1. ATORVASTATIN [Suspect]
     Indication: HYPERLIPIDAEMIA
     Dosage: 10 MG, QD
  2. PREDNISOLONE [Suspect]
     Indication: B-CELL LYMPHOMA
     Dosage: UNK
     Dates: start: 20060601
  3. FLUCONAZOLE [Suspect]
     Indication: INFECTION PROPHYLAXIS
     Dosage: 200 MG, QD
  4. CYCLOPHOSPHAMIDE [Suspect]
     Indication: B-CELL LYMPHOMA
     Dosage: UNK
     Dates: start: 20060601
  5. DOXORUBICIN HCL [Suspect]
     Indication: B-CELL LYMPHOMA
     Dosage: UNK
     Dates: start: 20060601
  6. VINCRISTINE [Suspect]
     Indication: B-CELL LYMPHOMA
     Dosage: UNK
     Dates: start: 20060601
  7. RITUXIMAB [Suspect]
     Indication: B-CELL LYMPHOMA
     Dosage: UNK
     Dates: start: 20060601
  8. ENTECAVIR [Suspect]
     Dosage: 0.5 MG, QD
  9. REBAMIPIDE [Suspect]
     Indication: INFECTION PROPHYLAXIS
     Dosage: 300 MG, QD
  10. CO-TRIMOXAZOLE [Concomitant]
     Indication: INFECTION PROPHYLAXIS
  11. SULPHAMETAZOLE [Concomitant]
  12. TRIMETHOPRIM [Concomitant]
     Dosage: 480 MG, QD

REACTIONS (3)
  - DRUG INTERACTION [None]
  - HEPATITIS B [None]
  - LIVER INJURY [None]
